FAERS Safety Report 5372717-6 (Version None)
Quarter: 2007Q2

REPORT INFORMATION
  Report Type: 
  Country: None (occurrence: None)
  Receive Date: 20070619
  Receipt Date: 20060509
  Transmission Date: 20071010
  Serious: Yes (Hospitalization, Other)
  Sender: FDA-Public Use
  Company Number: WAES 0605USA01788

PATIENT
  Age: 83 Year
  Sex: Female
  Weight: 73.4827 kg

DRUGS (15)
  1. COZAAR [Suspect]
     Indication: HYPERTENSION
     Dosage: 100 MG/DAILY/PO
     Route: 048
     Dates: start: 20030101, end: 20060420
  2. ACTOS [Concomitant]
     Indication: CARDIAC FAILURE
  3. CALTRATE [Concomitant]
  4. FLUOXETINE [Concomitant]
  5. LORTAB [Concomitant]
  6. NORVASC [Concomitant]
  7. PEPCID [Concomitant]
  8. TOPROL-XL [Concomitant]
  9. TYLENOL (CAPLET) [Concomitant]
  10. XALATAN [Concomitant]
  11. [THERAPY UNSPECIFIED] [Concomitant]
  12. CALCIUM (UNSPECIFIED) (+) VITAMI [Concomitant]
  13. FOLIC ACID [Concomitant]
  14. NITROGLYCERIN [Concomitant]
  15. PROCHLORPERAZINE [Concomitant]

REACTIONS (2)
  - ANGIOEDEMA [None]
  - OXYGEN SATURATION DECREASED [None]
